FAERS Safety Report 10028996 (Version 2)
Quarter: 2014Q2

REPORT INFORMATION
  Report Type: Spontaneous
  Country: US (occurrence: US)
  Receive Date: 20140321
  Receipt Date: 20140418
  Transmission Date: 20141212
  Serious: Yes (Other)
  Sender: FDA-Public Use
  Company Number: CHPA2014US004164

PATIENT
  Age: 88 Year
  Sex: Male

DRUGS (12)
  1. GAS-X CHEWABLE TABLETS UNKNOWN [Suspect]
     Indication: FLATULENCE
     Dosage: 1 CHEWABLE TABLET AT NIGHT
     Route: 048
     Dates: start: 20140312
  2. GAS-X CHEWABLE TABLETS UNKNOWN [Suspect]
     Indication: ABDOMINAL DISCOMFORT
  3. PLAVIX [Concomitant]
     Route: 065
  4. MULTI-VIT [Concomitant]
     Route: 065
  5. VITAMIN B12 [Concomitant]
     Dosage: 100 MG, UNK
     Route: 065
  6. FLOMAX ^BOEHRINGER INGELHEIM^ [Concomitant]
     Dosage: 2.4 MG, QID
     Route: 065
  7. COMBGEN [Concomitant]
     Route: 065
  8. MIRALAX [Concomitant]
     Route: 065
  9. DEXILANT [Concomitant]
     Dosage: 50 MG, UNK
     Route: 065
  10. METFORMIN [Concomitant]
     Dosage: 500 MG, QD
     Route: 065
  11. COLACE [Concomitant]
     Dosage: 200 MG, BID
     Route: 065
  12. NASONEX [Concomitant]
     Route: 065

REACTIONS (4)
  - Rectal haemorrhage [Not Recovered/Not Resolved]
  - Infrequent bowel movements [Unknown]
  - Insomnia [Unknown]
  - Discomfort [Unknown]
